FAERS Safety Report 8950573 (Version 2)
Quarter: 2013Q4

REPORT INFORMATION
  Report Type: Spontaneous
  Country: GB (occurrence: None)
  Receive Date: 20121128
  Receipt Date: 20131007
  Transmission Date: 20140711
  Serious: Yes (Other)
  Sender: FDA-Public Use
  Company Number: ABR_00713_2012

PATIENT
  Sex: 0

DRUGS (3)
  1. ERYTHROMYCIN (ERYTHROMYCIN) [Suspect]
     Indication: PRODUCT USED FOR UNKNOWN INDICATION
     Dosage: (DF TRANSPLACENTAL)
     Route: 064
     Dates: start: 20121030, end: 20121105
  2. OLBAS OIL [Concomitant]
  3. PARACETAMOL [Concomitant]

REACTIONS (3)
  - Foetal heart rate decreased [None]
  - Foetal hypokinesia [None]
  - Maternal drugs affecting foetus [None]
